FAERS Safety Report 20606034 (Version 2)
Quarter: 2022Q2

REPORT INFORMATION
  Report Type: Spontaneous
  Country: US (occurrence: US)
  Receive Date: 20220317
  Receipt Date: 20220419
  Transmission Date: 20220720
  Serious: Yes (Other)
  Sender: FDA-Public Use
  Company Number: US-BAYER-2022A035525

PATIENT
  Age: 20 Year
  Sex: Female

DRUGS (1)
  1. MIRENA [Suspect]
     Active Substance: LEVONORGESTREL
     Dosage: 20?G/DAY
     Route: 015
     Dates: start: 2016, end: 20180911

REACTIONS (13)
  - Device breakage [Not Recovered/Not Resolved]
  - Intracranial pressure increased [None]
  - Thyroid cancer [None]
  - Dizziness [None]
  - Headache [None]
  - Skin mass [Not Recovered/Not Resolved]
  - Complication of device removal [None]
  - Vaginal disorder [None]
  - Uterine cervical pain [Not Recovered/Not Resolved]
  - Cervix inflammation [None]
  - Cervix oedema [Not Recovered/Not Resolved]
  - Visual impairment [None]
  - Auditory disorder [None]

NARRATIVE: CASE EVENT DATE: 20180911
